FAERS Safety Report 9605197 (Version 1)
Quarter: 2013Q4

REPORT INFORMATION
  Report Type: Spontaneous
  Country: US (occurrence: US)
  Receive Date: 20131008
  Receipt Date: 20131008
  Transmission Date: 20140711
  Serious: No
  Sender: FDA-Public Use
  Company Number: US-009507513-1310USA003338

PATIENT
  Age: 17 Year
  Sex: Female
  Weight: 58.96 kg

DRUGS (2)
  1. NEXPLANON [Suspect]
     Indication: CONTRACEPTION
     Dosage: UNKNOWN
     Route: 059
     Dates: start: 20130712
  2. STRATTERA [Concomitant]
     Dosage: UNKNOWN

REACTIONS (1)
  - Metrorrhagia [Unknown]
